FAERS Safety Report 15536858 (Version 2)
Quarter: 2018Q4

REPORT INFORMATION
  Report Type: Spontaneous
  Country: NL (occurrence: NL)
  Receive Date: 20181022
  Receipt Date: 20181112
  Transmission Date: 20190205
  Serious: Yes (Other)
  Sender: FDA-Public Use
  Company Number: NL-PFIZER INC-2018422364

PATIENT
  Age: 20 Year
  Sex: Male

DRUGS (8)
  1. PHENYTOIN. [Concomitant]
     Active Substance: PHENYTOIN
     Indication: TONIC CLONIC MOVEMENTS
     Dosage: UNK
  2. PROPOFOL. [Suspect]
     Active Substance: PROPOFOL
     Dosage: 4.3 MG/KG/H, THE NEXT DAY
  3. MIDAZOLAM [Concomitant]
     Active Substance: MIDAZOLAM HYDROCHLORIDE
     Indication: SEDATION
  4. MORPHINE [Concomitant]
     Active Substance: MORPHINE
     Indication: SEDATION
     Dosage: 0.06 MG/KG, QH
  5. MIDAZOLAM [Concomitant]
     Active Substance: MIDAZOLAM HYDROCHLORIDE
     Indication: GENERALISED TONIC-CLONIC SEIZURE
     Dosage: 0.06 MG/KG, EVERY HOUR
  6. NOREPINEPHRINE. [Concomitant]
     Active Substance: NOREPINEPHRINE
     Indication: CEREBRAL HYPOPERFUSION
     Dosage: 0.1-1.4 MG/H; INFUSION
  7. PROPOFOL. [Suspect]
     Active Substance: PROPOFOL
     Indication: SEDATION
     Dosage: 7.14 MG/KG/H
  8. PROPOFOL. [Suspect]
     Active Substance: PROPOFOL
     Dosage: 5.14 MG/KG/H, AFTER 2H

REACTIONS (4)
  - Troponin T increased [Recovered/Resolved]
  - Myocardial necrosis marker increased [Recovered/Resolved]
  - Blood creatine phosphokinase increased [Recovered/Resolved]
  - Electrocardiogram T wave inversion [Recovered/Resolved]
